FAERS Safety Report 22049687 (Version 2)
Quarter: 2023Q1

REPORT INFORMATION
  Report Type: Spontaneous
  Country: US (occurrence: US)
  Receive Date: 20230301
  Receipt Date: 20230321
  Transmission Date: 20230417
  Serious: Yes (Other)
  Sender: FDA-Public Use
  Company Number: US-PFIZER INC-202300083402

PATIENT
  Sex: Female

DRUGS (6)
  1. PAXLOVID [Suspect]
     Active Substance: NIRMATRELVIR\RITONAVIR
     Indication: COVID-19 treatment
     Dosage: UNK
     Dates: start: 20220610, end: 20220614
  2. CARVEDILOL [Concomitant]
     Active Substance: CARVEDILOL
     Dosage: 12.5 MG, 2X/DAY
     Dates: start: 20180911, end: 20220701
  3. LIOTHYRONINE [LIOTHYRONINE SODIUM] [Concomitant]
     Dosage: 25 UG, 1X/DAY
     Dates: start: 19900101
  4. LISINOPRIL [Concomitant]
     Active Substance: LISINOPRIL
     Dosage: 2.5 MG, 2X/DAY
     Dates: start: 20220602, end: 20220701
  5. CLOPIDOGREL [Concomitant]
     Active Substance: CLOPIDOGREL BISULFATE
     Dosage: 75 MG, 1X/DAY
     Dates: start: 20180911, end: 20220512
  6. METRONIDAZOLE [Concomitant]
     Active Substance: METRONIDAZOLE
     Indication: Rash
     Dosage: 500 MG, 2X/DAY
     Dates: start: 20220525, end: 20220609

REACTIONS (5)
  - Diverticulitis [Unknown]
  - Sinusitis [Unknown]
  - Disease recurrence [Unknown]
  - Nail infection [Unknown]
  - Pain [Unknown]

NARRATIVE: CASE EVENT DATE: 20220101
